FAERS Safety Report 17315969 (Version 2)
Quarter: 2020Q1

REPORT INFORMATION
  Report Type: Spontaneous
  Country: GB (occurrence: GB)
  Receive Date: 20200124
  Receipt Date: 20200310
  Transmission Date: 20200409
  Serious: Yes (Death, Other)
  Sender: FDA-Public Use
  Company Number: GB-CELGENEUS-GBR-20200108246

PATIENT
  Sex: Male

DRUGS (3)
  1. LENALIDOMIDE [Suspect]
     Active Substance: LENALIDOMIDE
     Indication: PLASMA CELL MYELOMA
     Route: 048
     Dates: start: 201203, end: 201306
  2. LENALIDOMIDE [Suspect]
     Active Substance: LENALIDOMIDE
     Route: 048
     Dates: start: 20140908
  3. LMWH [Concomitant]
     Active Substance: UNSPECIFIED INGREDIENT
     Indication: PULMONARY EMBOLISM
     Route: 065
     Dates: start: 20141215

REACTIONS (2)
  - Plasma cell myeloma recurrent [Not Recovered/Not Resolved]
  - Laryngeal squamous cell carcinoma [Fatal]

NARRATIVE: CASE EVENT DATE: 20190819
